FAERS Safety Report 4310501-2 (Version None)
Quarter: 2004Q1

REPORT INFORMATION
  Report Type: 
  Country: None (occurrence: None)
  Receive Date: 20040301
  Receipt Date: 20031103
  Transmission Date: 20041129
  Serious: No
  Sender: FDA-Public Use
  Company Number: WAES 0311USA01068

PATIENT
  Age: 56 Year
  Sex: Male
  Weight: 88.4514 kg

DRUGS (6)
  1. ZETIA [Suspect]
     Dosage: 10 MG/DAILY/PO
     Route: 048
     Dates: start: 20030129, end: 20030805
  2. PRAVACHOL [Suspect]
     Dosage: 10 MG/DAILY
     Dates: end: 20030805
  3. CARDIZEM CD [Concomitant]
  4. LUMIGAN [Concomitant]
  5. ASPIRIN [Concomitant]
  6. VITAMIN E [Concomitant]

REACTIONS (4)
  - ASPARTATE AMINOTRANSFERASE INCREASED [None]
  - BLOOD CREATINE PHOSPHOKINASE INCREASED [None]
  - ERECTILE DYSFUNCTION [None]
  - NECK PAIN [None]
